FAERS Safety Report 13225985 (Version 1)
Quarter: 2017Q1

REPORT INFORMATION
  Report Type: Spontaneous
  Country: US (occurrence: US)
  Receive Date: 20170211
  Receipt Date: 20170211
  Transmission Date: 20170428
  Serious: Yes (Other)
  Sender: FDA-Public Use
  Company Number: None

PATIENT
  Age: 36 Year
  Sex: Female
  Weight: 80.55 kg

DRUGS (20)
  1. SKELAXIN [Concomitant]
     Active Substance: METAXALONE
  2. MAGNESIUM CHELATE [Concomitant]
     Active Substance: MAGNESIUM
  3. NEXIUM [Concomitant]
     Active Substance: ESOMEPRAZOLE MAGNESIUM
  4. NUCYNTA [Suspect]
     Active Substance: TAPENTADOL HYDROCHLORIDE
     Indication: ARTHROPATHY
     Dosage: ?          QUANTITY:90 TABLET(S);?
     Route: 048
  5. AMBIEN CR [Concomitant]
     Active Substance: ZOLPIDEM TARTRATE
  6. K1 AND K2 (SUPER K) [Concomitant]
  7. ALPHA LIPOIC ACID [Concomitant]
     Active Substance: .ALPHA.-LIPOIC ACID
  8. PHENERGAN [Concomitant]
     Active Substance: PROMETHAZINE HYDROCHLORIDE
  9. WELLBUTRIN XL [Concomitant]
     Active Substance: BUPROPION HYDROCHLORIDE
  10. MULTIVITAMINS [Concomitant]
     Active Substance: VITAMINS
  11. CYTOMEL [Concomitant]
     Active Substance: LIOTHYRONINE SODIUM
  12. VITAMIN D3 [Concomitant]
     Active Substance: CHOLECALCIFEROL
  13. DHA/FISH OIL [Concomitant]
  14. DHEA [Concomitant]
     Active Substance: PRASTERONE
  15. AMINO ACIDS [Concomitant]
     Active Substance: AMINO ACIDS
  16. SYNTHROID [Concomitant]
     Active Substance: LEVOTHYROXINE SODIUM
  17. LYRICA [Concomitant]
     Active Substance: PREGABALIN
  18. KLONOPIN [Concomitant]
     Active Substance: CLONAZEPAM
  19. 5 HTP [Concomitant]
  20. PROBIOTICS [Concomitant]
     Active Substance: PROBIOTICS NOS

REACTIONS (1)
  - Gastrooesophageal reflux disease [None]

NARRATIVE: CASE EVENT DATE: 20160210
